FAERS Safety Report 7255203-8 (Version None)
Quarter: 2011Q1

REPORT INFORMATION
  Report Type: 
  Country: None (occurrence: None)
  Receive Date: 20110129
  Receipt Date: 20100406
  Transmission Date: 20110831
  Serious: No
  Sender: FDA-Public Use
  Company Number: US-ABBOTT-10P-163-0627933-00

PATIENT
  Sex: Female
  Weight: 78.542 kg

DRUGS (2)
  1. HUMIRA [Suspect]
     Indication: CROHN'S DISEASE
     Dosage: DAY 1
     Dates: start: 20100219
  2. HUMIRA [Suspect]

REACTIONS (5)
  - INJECTION SITE WARMTH [None]
  - INJECTION SITE REACTION [None]
  - INJECTION SITE PRURITUS [None]
  - INJECTION SITE PAPULE [None]
  - INJECTION SITE ERYTHEMA [None]
